FAERS Safety Report 13358382 (Version 1)
Quarter: 2017Q1

REPORT INFORMATION
  Report Type: Spontaneous
  Country: US (occurrence: US)
  Receive Date: 20170321
  Receipt Date: 20170321
  Transmission Date: 20170429
  Serious: Yes (Other)
  Sender: FDA-Public Use
  Company Number: None

PATIENT
  Age: 7 Year
  Sex: Male
  Weight: 27 kg

DRUGS (4)
  1. PROAIR HFA [Concomitant]
     Active Substance: ALBUTEROL SULFATE
  2. MIRALAX [Suspect]
     Active Substance: POLYETHYLENE GLYCOL 3350
     Indication: RECTAL PROLAPSE
     Dosage: 1 CAPFULL ORAL
     Route: 048
     Dates: start: 20101130, end: 20131231
  3. FLOVENT [Concomitant]
     Active Substance: FLUTICASONE PROPIONATE
  4. MIRALAX [Suspect]
     Active Substance: POLYETHYLENE GLYCOL 3350
     Indication: CONSTIPATION
     Dosage: 1 CAPFULL ORAL
     Route: 048
     Dates: start: 20101130, end: 20131231

REACTIONS (1)
  - Depression [None]

NARRATIVE: CASE EVENT DATE: 20160104
